FAERS Safety Report 20898349 (Version 1)
Quarter: 2022Q2

REPORT INFORMATION
  Report Type: Report from Study
  Country: BR (occurrence: BR)
  Receive Date: 20220531
  Receipt Date: 20220531
  Transmission Date: 20220720
  Serious: Yes (Other)
  Sender: FDA-Public Use
  Company Number: BR-ABBVIE-22K-020-4414799-00

PATIENT
  Age: 37 Year
  Sex: Male
  Weight: 87 kg

DRUGS (1)
  1. SKYRIZI [Suspect]
     Active Substance: RISANKIZUMAB-RZAA
     Indication: Psoriasis
     Dosage: EVERY 3 MONTHS
     Route: 058
     Dates: start: 20210103

REACTIONS (5)
  - Traumatic lung injury [Unknown]
  - COVID-19 [Recovering/Resolving]
  - Oropharyngeal discomfort [Unknown]
  - Discomfort [Unknown]
  - Sinusitis [Recovering/Resolving]

NARRATIVE: CASE EVENT DATE: 20220501
